FAERS Safety Report 4912034-9 (Version None)
Quarter: 2006Q1

REPORT INFORMATION
  Report Type: 
  Country: None (occurrence: None)
  Receive Date: 20060213
  Receipt Date: 20060130
  Transmission Date: 20060701
  Serious: Yes (Hospitalization)
  Sender: FDA-Public Use
  Company Number: MEDI-0003944

PATIENT
  Age: 9 Day
  Sex: Female
  Weight: 2.575 kg

DRUGS (5)
  1. SYNAGIS [Suspect]
     Indication: ANTIVIRAL PROPHYLAXIS
     Dosage: 38.9 MG, 1 IN 30 D, INTRAMUSCULAR
     Route: 030
     Dates: start: 20051215, end: 20051215
  2. SYNAGIS [Suspect]
     Indication: ANTIVIRAL PROPHYLAXIS
     Dosage: 38.9 MG, 1 IN 30 D, INTRAMUSCULAR
     Route: 030
     Dates: start: 20060123
  3. SYNAGIS [Suspect]
  4. D-VIS-SOL (COLECALCIFEROL) [Concomitant]
  5. GENTAMICIN SULFATE [Concomitant]

REACTIONS (3)
  - CONVULSION NEONATAL [None]
  - TREMOR NEONATAL [None]
  - URINARY TRACT INFECTION [None]
